FAERS Safety Report 6454639-2 (Version None)
Quarter: 2009Q4

REPORT INFORMATION
  Report Type: 
  Country: None (occurrence: None)
  Receive Date: 20091118
  Receipt Date: 20091104
  Transmission Date: 20100525
  Serious: Yes (Other)
  Sender: FDA-Public Use
  Company Number: 8054402

PATIENT
  Age: 37 Year
  Sex: Male

DRUGS (5)
  1. CERTOLIZUMAS PEGOL [Suspect]
     Dosage: 400 MG 1/2W SC
     Route: 058
     Dates: start: 20040826, end: 20040923
  2. CERTOLIZUMAS PEGOL [Suspect]
     Dosage: 400 MG /M SC
     Route: 058
     Dates: start: 20050328
  3. ASACOL [Concomitant]
  4. NIFEDIPINE [Concomitant]
  5. CANASA [Concomitant]

REACTIONS (1)
  - PERIRECTAL ABSCESS [None]
